FAERS Safety Report 26160476 (Version 1)
Quarter: 2025Q4

REPORT INFORMATION
  Report Type: Spontaneous
  Country: US (occurrence: US)
  Receive Date: 20251216
  Receipt Date: 20251216
  Transmission Date: 20260117
  Serious: Yes (Disabling)
  Sender: IPSEN BIOPHARMACEUTICALS, INC.
  Company Number: US-IPSEN Group, Research and Development-2025-30634

PATIENT
  Age: 61 Year
  Sex: Male

DRUGS (1)
  1. IQIRVO [Suspect]
     Active Substance: ELAFIBRANOR
     Indication: Primary biliary cholangitis
     Route: 048

REACTIONS (3)
  - Muscle spasms [Unknown]
  - Mobility decreased [Unknown]
  - Vision blurred [Unknown]
